FAERS Safety Report 6295146-X (Version None)
Quarter: 2009Q3

REPORT INFORMATION
  Report Type: 
  Country: None (occurrence: None)
  Receive Date: 20090803
  Receipt Date: 20090729
  Transmission Date: 20100115
  Serious: No
  Sender: FDA-Public Use
  Company Number: US-B.I. PHARMACEUTICALS,INC./RIDGEFIELD-2009-BP-08963BP

PATIENT
  Sex: Female

DRUGS (3)
  1. CATAPRES-TTS-1 [Suspect]
     Indication: HYPERTENSION
     Dosage: 0.3 MG
     Route: 061
     Dates: start: 20090101, end: 20090301
  2. CATAPRES-TTS-1 [Suspect]
     Dosage: 0.2 MG
     Route: 061
     Dates: start: 20090301
  3. LOTREL [Concomitant]
     Indication: HYPERTENSION

REACTIONS (4)
  - APPLICATION SITE ERYTHEMA [None]
  - APPLICATION SITE VESICLES [None]
  - FATIGUE [None]
  - LYMPHADENOPATHY [None]
